FAERS Safety Report 7057307-1 (Version None)
Quarter: 2010Q4

REPORT INFORMATION
  Report Type: 
  Country: None (occurrence: None)
  Receive Date: 20101022
  Receipt Date: 20101019
  Transmission Date: 20110411
  Serious: Yes (Other)
  Sender: FDA-Public Use
  Company Number: US-BRISTOL-MYERS SQUIBB COMPANY-15342108

PATIENT
  Sex: Female

DRUGS (4)
  1. ABILIFY [Interacting]
     Dosage: 3 HRS AFTER TAKING HER FIRST DOSE
     Dates: start: 20101001
  2. NALTREXONE HYDROCHLORIDE [Suspect]
     Indication: MULTIPLE SCLEROSIS
  3. KLONOPIN [Concomitant]
  4. LOMOTIL [Concomitant]

REACTIONS (2)
  - DRUG INTERACTION [None]
  - NEUROLEPTIC MALIGNANT SYNDROME [None]
